FAERS Safety Report 7457155-4 (Version None)
Quarter: 2011Q2

REPORT INFORMATION
  Report Type: 
  Country: None (occurrence: None)
  Receive Date: 20110426
  Receipt Date: 20110411
  Transmission Date: 20111010
  Serious: No
  Sender: FDA-Public Use
  Company Number: 2011MA003697

PATIENT
  Age: 73 Year
  Sex: Female

DRUGS (1)
  1. LIDOCAINE HCL [Suspect]
     Indication: OCCIPITAL NEURALGIA
     Dosage: 1X, INJ

REACTIONS (2)
  - CONVERSION DISORDER [None]
  - HYPERTENSION [None]
